FAERS Safety Report 7612935-7 (Version None)
Quarter: 2011Q3

REPORT INFORMATION
  Report Type: 
  Country: None (occurrence: None)
  Receive Date: 20110713
  Receipt Date: 20110616
  Transmission Date: 20111222
  Serious: No
  Sender: FDA-Public Use
  Company Number: US-005572

PATIENT
  Sex: Male
  Weight: 102.9665 kg

DRUGS (8)
  1. DEGARELIX 240 MG [Suspect]
     Indication: PROSTATE CANCER
     Dosage: (240 MG 1X SUBCUTANEOUS)
     Route: 058
     Dates: start: 20110610, end: 20110610
  2. VIAGRA [Concomitant]
  3. FISH OIL [Concomitant]
  4. HYDROCHLOROTHIAZIDE [Concomitant]
  5. FLUOXETINE [Concomitant]
  6. GLUCOSAMINE [Concomitant]
  7. LISINOPRIL [Concomitant]
  8. TRAZODONE HCL [Concomitant]

REACTIONS (2)
  - INJECTION SITE PAIN [None]
  - URTICARIA [None]
